FAERS Safety Report 5413021-7 (Version None)
Quarter: 2007Q3

REPORT INFORMATION
  Report Type: 
  Country: None (occurrence: None)
  Receive Date: 20070813
  Receipt Date: 20070801
  Transmission Date: 20080115
  Serious: Yes (Other)
  Sender: FDA-Public Use
  Company Number: US-PFIZER INC-2007057008

PATIENT
  Age: 86 Year
  Sex: Female

DRUGS (2)
  1. XALATAN [Suspect]
     Indication: ABNORMAL SENSATION IN EYE
     Route: 047
     Dates: start: 20070101, end: 20070701
  2. OPHTHALMOLOGICALS [Concomitant]

REACTIONS (3)
  - BLINDNESS [None]
  - EYE IRRITATION [None]
  - VISION BLURRED [None]
